FAERS Safety Report 9646537 (Version 1)
Quarter: 2013Q4

REPORT INFORMATION
  Report Type: Report from Study
  Country: US (occurrence: US)
  Receive Date: 20131025
  Receipt Date: 20131025
  Transmission Date: 20140711
  Serious: Yes (Hospitalization, Other)
  Sender: FDA-Public Use
  Company Number: US-ABBVIE-13P-163-1160367-00

PATIENT
  Sex: Male

DRUGS (3)
  1. HUMIRA [Suspect]
     Indication: CROHN^S DISEASE
     Route: 058
     Dates: start: 2006, end: 201304
  2. METHOTREXATE [Concomitant]
     Indication: CROHN^S DISEASE
  3. PAIN MEDICATION AND OTHER THINGS [Concomitant]
     Indication: CROHN^S DISEASE

REACTIONS (3)
  - Pneumothorax [Unknown]
  - Gastrointestinal fistula [Recovered/Resolved]
  - Pneumonia [Unknown]
